FAERS Safety Report 16765450 (Version 7)
Quarter: 2021Q2

REPORT INFORMATION
  Report Type: Report from Study
  Country: BR (occurrence: BR)
  Receive Date: 20190903
  Receipt Date: 20210521
  Transmission Date: 20210716
  Serious: Yes (Other)
  Sender: FDA-Public Use
  Company Number: BR-GLAXOSMITHKLINE-BR2019GSK056329

PATIENT
  Age: 54 Year
  Sex: Female
  Weight: 77 kg

DRUGS (2)
  1. BELIMUMAB [Suspect]
     Active Substance: BELIMUMAB
     Indication: SYSTEMIC LUPUS ERYTHEMATOSUS
     Dosage: 10 MG/KG, CYC
     Route: 042
     Dates: start: 20190410, end: 20200416
  2. BELIMUMAB [Suspect]
     Active Substance: BELIMUMAB
     Dosage: UNK, CYC
     Route: 042
     Dates: start: 20200514

REACTIONS (24)
  - Cerebrovascular accident [Unknown]
  - Incorrect dose administered [Unknown]
  - Fatigue [Unknown]
  - Inappropriate schedule of product administration [Not Recovered/Not Resolved]
  - Pancreatic disorder [Unknown]
  - Product dose omission issue [Unknown]
  - Pain [Not Recovered/Not Resolved]
  - Anxiety [Unknown]
  - Arthralgia [Unknown]
  - Blood insulin increased [Unknown]
  - Therapy interrupted [Unknown]
  - Blood glucose decreased [Unknown]
  - Immune system disorder [Unknown]
  - Sensory loss [Unknown]
  - Dysphonia [Unknown]
  - Anaemia [Unknown]
  - Malaise [Unknown]
  - Memory impairment [Unknown]
  - Urinary tract infection [Recovered/Resolved]
  - Social problem [Unknown]
  - Systemic lupus erythematosus [Unknown]
  - Fall [Unknown]
  - Abdominal pain upper [Unknown]
  - Raynaud^s phenomenon [Not Recovered/Not Resolved]

NARRATIVE: CASE EVENT DATE: 201908
